FAERS Safety Report 8225667-1 (Version None)
Quarter: 2012Q1

REPORT INFORMATION
  Report Type: 
  Country: None (occurrence: None)
  Receive Date: 20120321
  Receipt Date: 20120313
  Transmission Date: 20120608
  Serious: Yes (Other)
  Sender: FDA-Public Use
  Company Number: JP-EISAI INC-E7389-01401-SPO-JP

PATIENT
  Sex: Female
  Weight: 49 kg

DRUGS (4)
  1. OXYCONTIN [Concomitant]
     Route: 048
  2. HALAVEN [Suspect]
     Route: 041
     Dates: start: 20110802, end: 20110802
  3. HALAVEN [Suspect]
     Indication: METASTASES TO LIVER
  4. HALAVEN [Suspect]
     Indication: METASTASES TO BONE

REACTIONS (1)
  - HEPATIC FUNCTION ABNORMAL [None]
